FAERS Safety Report 8015704-1 (Version None)
Quarter: 2011Q4

REPORT INFORMATION
  Report Type: 
  Country: None (occurrence: None)
  Receive Date: 20111230
  Receipt Date: 20111024
  Transmission Date: 20120403
  Serious: Yes (Other)
  Sender: FDA-Public Use
  Company Number: PHHY2011NL105962

PATIENT
  Sex: Male

DRUGS (3)
  1. ZOMETA [Suspect]
     Indication: PROSTATE CANCER METASTATIC
     Dosage: 4 MG, / 5 ML ONCE PER 42 DAYS
     Dates: start: 20090505
  2. ZOMETA [Suspect]
     Dosage: 4 MG, / 5 ML ONCE PER 42 DAYS
     Dates: start: 20111024
  3. ZOMETA [Suspect]
     Dosage: 4 MG, / 5 ML ONCE PER 42 DAYS
     Dates: start: 20110912

REACTIONS (2)
  - TERMINAL STATE [None]
  - GENERAL PHYSICAL HEALTH DETERIORATION [None]
